FAERS Safety Report 5258992-7 (Version None)
Quarter: 2007Q1

REPORT INFORMATION
  Report Type: 
  Country: None (occurrence: None)
  Receive Date: 20070305
  Receipt Date: 20070221
  Transmission Date: 20070707
  Serious: Yes (Other)
  Sender: FDA-Public Use
  Company Number: 236951

PATIENT
  Age: 63 Year
  Sex: Male
  Weight: 88.4 kg

DRUGS (5)
  1. RAPTIVA [Suspect]
     Indication: PSORIASIS
     Dosage: 0.9 ML, 1/WEEK, SUBCUTANEOUS
     Route: 058
     Dates: start: 20061031
  2. LASIX [Concomitant]
  3. PRAVACHOL [Concomitant]
  4. ZESTRIL [Concomitant]
  5. ASPIRIN [Concomitant]

REACTIONS (2)
  - ACUTE RESPIRATORY DISTRESS SYNDROME [None]
  - CONDITION AGGRAVATED [None]
